FAERS Safety Report 17560331 (Version 3)
Quarter: 2020Q3

REPORT INFORMATION
  Report Type: Report from Study
  Country: US (occurrence: US)
  Receive Date: 20200319
  Receipt Date: 20200701
  Transmission Date: 20201102
  Serious: Yes (Hospitalization)
  Sender: FDA-Public Use
  Company Number: NVSC2020US075442

PATIENT
  Age: 40 Year
  Sex: Female

DRUGS (1)
  1. GILENYA [Suspect]
     Active Substance: FINGOLIMOD HYDROCHLORIDE
     Indication: MULTIPLE SCLEROSIS
     Dosage: 0.5 MG, QD
     Route: 048
     Dates: start: 20180822

REACTIONS (7)
  - Arthritis [Unknown]
  - Cerebrovascular accident [Unknown]
  - Migraine [Unknown]
  - Back pain [Unknown]
  - Pain in extremity [Unknown]
  - Mood swings [Unknown]
  - Sciatica [Unknown]

NARRATIVE: CASE EVENT DATE: 20200428
